FAERS Safety Report 6744976-6 (Version None)
Quarter: 2010Q2

REPORT INFORMATION
  Report Type: 
  Country: None (occurrence: None)
  Receive Date: 20100527
  Receipt Date: 20100513
  Transmission Date: 20101027
  Serious: Yes (Other)
  Sender: FDA-Public Use
  Company Number: ES-WATSON-2010-05626

PATIENT
  Age: 50 Year
  Sex: Male

DRUGS (8)
  1. DEXAMETHASONE (WATSON LABORATORIES) [Suspect]
     Indication: GLIOBLASTOMA MULTIFORME
     Dosage: 2 MG, Q12H
     Dates: start: 20061101
  2. DEXAMETHASONE (WATSON LABORATORIES) [Suspect]
     Dosage: 4 MG, Q 6H
     Dates: start: 20061101
  3. TEMOZOLOMIDE [Suspect]
     Indication: GLIOBLASTOMA MULTIFORME
     Dosage: UNK
     Dates: start: 20060101
  4. CISPLATIN [Suspect]
     Indication: GLIOBLASTOMA MULTIFORME
     Dosage: 65 MG/MM
     Dates: start: 20061101
  5. CARMUSTINE [Suspect]
     Indication: GLIOBLASTOMA MULTIFORME
     Dosage: 100 MG/MM
     Dates: start: 20061101
  6. PHENYTOIN [Suspect]
     Indication: STATUS EPILEPTICUS
     Dosage: 1G IN 30 MIN, THEN 100 MG/8 HOURS
     Route: 042
     Dates: start: 20060101
  7. PHENYTOIN [Suspect]
     Dosage: 100 MG, Q 8 HOURS
     Route: 048
     Dates: start: 20060101
  8. PHENYTOIN [Suspect]
     Dosage: 400 MG, TID
     Route: 048
     Dates: start: 20061101

REACTIONS (2)
  - DRUG INTERACTION [None]
  - OPHTHALMOPLEGIA [None]
